FAERS Safety Report 9445793 (Version 3)
Quarter: 2014Q1

REPORT INFORMATION
  Report Type: Spontaneous
  Country: GB (occurrence: GB)
  Receive Date: 20130807
  Receipt Date: 20140205
  Transmission Date: 20141002
  Serious: Yes (Other)
  Sender: FDA-Public Use
  Company Number: PHFR2013GB004428

PATIENT
  Age: 45 Year
  Sex: Female

DRUGS (10)
  1. MYCOPHENOLATE MOFETIL [Suspect]
     Indication: MIXED CONNECTIVE TISSUE DISEASE
     Dosage: 2 G QD
  2. MYCOPHENOLATE MOFETIL [Suspect]
     Dosage: 1.5 G, QD
  3. AMLODIPINE [Concomitant]
     Dosage: 5 MG QD
  4. LISINOPRIL [Concomitant]
     Dosage: 5 MG QD
  5. LANSOPRAZOLE [Concomitant]
     Dosage: 30 MG QD
  6. ASPIRIN [Concomitant]
     Dosage: 75 MG
  7. PREDNISOLONE [Concomitant]
     Dosage: 10 U, QOD
  8. PREDNISOLONE [Concomitant]
     Dosage: 12 U, QOD
  9. WARFARIN [Concomitant]
     Dosage: 4 MG
  10. IRON [Concomitant]
     Indication: ANAEMIA

REACTIONS (4)
  - International normalised ratio increased [Not Recovered/Not Resolved]
  - Haemorrhage [Not Recovered/Not Resolved]
  - Blood blister [Unknown]
  - Conjunctival haemorrhage [Unknown]
